FAERS Safety Report 10023122 (Version 3)
Quarter: 2014Q2

REPORT INFORMATION
  Report Type: Spontaneous
  Country: DE (occurrence: DE)
  Receive Date: 20140320
  Receipt Date: 20140418
  Transmission Date: 20141212
  Serious: Yes (Other)
  Sender: FDA-Public Use
  Company Number: DE-ROCHE-1368215

PATIENT
  Age: 71 Year
  Sex: Female

DRUGS (4)
  1. MABTHERA [Suspect]
     Indication: CHRONIC LYMPHOCYTIC LEUKAEMIA
     Route: 042
     Dates: start: 20110214
  2. BISOPROLOL [Concomitant]
     Indication: HYPERTENSION
     Route: 048
  3. BENAZEPRIL [Concomitant]
     Route: 048
  4. ADENURIC [Concomitant]
     Indication: GOUT
     Route: 048

REACTIONS (1)
  - Alopecia [Not Recovered/Not Resolved]
